FAERS Safety Report 7861470-X (Version None)
Quarter: 2011Q4

REPORT INFORMATION
  Report Type: 
  Country: None (occurrence: None)
  Receive Date: 20111027
  Receipt Date: 20111025
  Transmission Date: 20120403
  Serious: Yes (Hospitalization, Other)
  Sender: FDA-Public Use
  Company Number: DK-PFIZER INC-2011157836

PATIENT
  Age: 19 Year
  Sex: Female
  Weight: 73.6 kg

DRUGS (16)
  1. EFFEXOR [Suspect]
     Indication: PRODUCT USED FOR UNKNOWN INDICATION
     Dosage: 75 MG
     Dates: start: 20060928, end: 20081201
  2. IBUPROFEN [Concomitant]
     Indication: PAIN
     Dates: start: 20061201
  3. MIANSERIN [Suspect]
     Indication: DEPRESSION
     Dosage: UNK
     Dates: start: 20080925, end: 20081201
  4. PAROXETINE HCL [Suspect]
     Indication: DEPRESSION
     Dates: start: 20090223
  5. TRAMADOL HCL [Suspect]
     Indication: PAIN
     Dates: start: 20060816, end: 20061201
  6. IBRUPROFEN [Suspect]
     Indication: HEADACHE
     Dates: start: 20060816
  7. IMOVANE [Suspect]
     Indication: INSOMNIA
     Dosage: UNK
     Dates: start: 20060405, end: 20110401
  8. PAMOL [Concomitant]
     Indication: PAIN
     Dates: start: 20061201
  9. ACETAMINOPHEN [Concomitant]
     Indication: HEADACHE
     Dates: start: 20060816
  10. MAGNESIUM HYDROXIDE [Concomitant]
     Dosage: 6-8 TABLETS DAILY
  11. EFFEXOR [Suspect]
     Dosage: 150 MG
     Dates: end: 20081201
  12. TRUXAL [Suspect]
     Indication: PSYCHOTIC DISORDER
     Dosage: UNK
     Dates: start: 20061201, end: 20110801
  13. NORTRIPTYLINE HCL [Suspect]
     Indication: DEPRESSION
     Dosage: UNK
     Dates: start: 20090223, end: 20110701
  14. MIRTAZAPINE [Suspect]
     Indication: ANXIETY
     Dosage: UNK
     Dates: start: 20060320, end: 20110401
  15. MIGEA [Suspect]
     Indication: MIGRAINE
     Dates: start: 20100618
  16. PAROXETINE HYDROCHLORIDE [Concomitant]
     Dosage: UNK
     Dates: end: 20100101

REACTIONS (10)
  - GASTROOESOPHAGEAL REFLUX DISEASE [None]
  - SUICIDAL IDEATION [None]
  - FAECES HARD [None]
  - ABDOMINAL DISTENSION [None]
  - DYSPEPSIA [None]
  - CONSTIPATION [None]
  - OEDEMA [None]
  - DEPRESSION [None]
  - HAEMORRHOIDS [None]
  - RECTAL HAEMORRHAGE [None]
